FAERS Safety Report 8129825-6 (Version None)
Quarter: 2012Q1

REPORT INFORMATION
  Report Type: 
  Country: None (occurrence: None)
  Receive Date: 20120103
  Receipt Date: 20111118
  Transmission Date: 20120608
  Serious: No
  Sender: FDA-Public Use
  Company Number: AE-2011-003771

PATIENT
  Age: 40 Year
  Sex: Female
  Weight: 92.9874 kg

DRUGS (9)
  1. PEGASYS [Concomitant]
  2. XANAX [Concomitant]
  3. FLEXERIL [Concomitant]
  4. RIBAVIRIN [Concomitant]
  5. ABILIFY [Concomitant]
  6. BENADRYL [Concomitant]
  7. ESOMEPRAZOLE MAGNESIUM [Concomitant]
  8. FOSAMAX [Concomitant]
  9. INCIVEK [Suspect]
     Dosage: 2250 MG (750 MG, 1 IN 8 HR), ORAL
     Route: 048
     Dates: start: 20111103

REACTIONS (1)
  - RASH [None]
